FAERS Safety Report 5700805-0 (Version None)
Quarter: 2008Q2

REPORT INFORMATION
  Report Type: 
  Country: None (occurrence: None)
  Receive Date: 20080410
  Receipt Date: 20080402
  Transmission Date: 20081010
  Serious: Yes (Other)
  Sender: FDA-Public Use
  Company Number: KR-TEVA-169704ISR

PATIENT
  Sex: Female

DRUGS (5)
  1. CISPLATIN [Suspect]
     Indication: BONE SARCOMA
     Dosage: CISPLATIN 100 MG/M2 EVERY 3-4 WEEKS (TOTAL DOSE 780 MG/M2)
  2. DOXORUBICIN HCL [Suspect]
     Indication: BONE SARCOMA
     Dosage: 60 MG/M2 EVERY 4 WEEKS (TOTAL DOSE 293 MG/M2)
  3. BLEOMYCIN SULFATE [Suspect]
     Indication: BONE SARCOMA
  4. CYCLOPHOSPHAMIDE [Suspect]
     Indication: BONE SARCOMA
  5. DACTINOMYCIN [Suspect]
     Indication: BONE SARCOMA

REACTIONS (2)
  - CONGESTIVE CARDIOMYOPATHY [None]
  - THYROID CANCER [None]
